FAERS Safety Report 7433009-4 (Version None)
Quarter: 2011Q2

REPORT INFORMATION
  Report Type: 
  Country: None (occurrence: None)
  Receive Date: 20110422
  Receipt Date: 20110413
  Transmission Date: 20111010
  Serious: No
  Sender: FDA-Public Use
  Company Number: US-B.I. PHARMACEUTICALS,INC./RIDGEFIELD-2010-BP-15161BP

PATIENT
  Age: 78 Year
  Sex: Male
  Weight: 73.94 kg

DRUGS (16)
  1. PRADAXA [Suspect]
     Indication: ATRIAL FIBRILLATION
     Dosage: 300 MG
     Route: 048
     Dates: start: 20101129
  2. ULORIC [Concomitant]
     Indication: GOUT
     Dosage: 40 MG
  3. VITAMIN D [Concomitant]
  4. LASIX [Concomitant]
     Dosage: 80 MG
  5. COREG CR [Concomitant]
     Indication: CARDIAC DISORDER
     Dosage: 80 MG
  6. NEXIUM [Concomitant]
     Indication: GASTRIC DISORDER
     Dosage: 40 MG
  7. NEXIUM [Concomitant]
     Dosage: 40 MG
  8. BONIVA [Concomitant]
  9. TERAZOSIN [Concomitant]
     Indication: BENIGN PROSTATIC HYPERPLASIA
  10. ALLEGRA [Concomitant]
     Dosage: 80 MG
  11. ASPIRIN [Concomitant]
     Indication: CARDIAC DISORDER
     Dosage: 81 MG
  12. WATER PILL [Concomitant]
     Indication: CARDIAC DISORDER
  13. PRADAXA [Suspect]
     Indication: ANTICOAGULANT THERAPY
  14. DIGOXIN [Concomitant]
     Indication: CARDIAC DISORDER
     Dosage: 0.25 MG
  15. HYTRIN [Concomitant]
     Dosage: 5 MG
  16. PRAVACHOL [Concomitant]
     Indication: GOUT
     Dosage: 20 MG

REACTIONS (2)
  - ARTHRALGIA [None]
  - PAIN IN EXTREMITY [None]
